FAERS Safety Report 4368365-7 (Version None)
Quarter: 2004Q2

REPORT INFORMATION
  Report Type: 
  Country: None (occurrence: None)
  Receive Date: 20040602
  Receipt Date: 20040521
  Transmission Date: 20050107
  Serious: Yes (Other)
  Sender: FDA-Public Use
  Company Number: AU-BRISTOL-MYERS SQUIBB COMPANY-12592382

PATIENT
  Sex: Male

DRUGS (1)
  1. AVAPRO-HCT TABS [Suspect]
     Route: 048

REACTIONS (1)
  - NEPHROTIC SYNDROME [None]
